FAERS Safety Report 10054868 (Version 1)
Quarter: 2014Q2

REPORT INFORMATION
  Report Type: Spontaneous
  Country: US (occurrence: US)
  Receive Date: 20140402
  Receipt Date: 20140402
  Transmission Date: 20141212
  Serious: Yes (Other)
  Sender: FDA-Public Use
  Company Number: US-PFIZER INC-2014091705

PATIENT
  Age: 57 Year
  Sex: Female

DRUGS (3)
  1. LIDOCAINE HCL [Suspect]
     Indication: LOCAL ANAESTHESIA
     Dosage: 15 CC OF 2%
  2. ROPIVACAINE [Suspect]
     Indication: LOCAL ANAESTHESIA
     Dosage: 15 CC OF 0.5%
  3. MIDAZOLAM [Concomitant]
     Dosage: 1 MG AND 50 MCG

REACTIONS (3)
  - Anaesthetic complication [Recovering/Resolving]
  - Depressed level of consciousness [Recovering/Resolving]
  - Somnolence [Recovering/Resolving]
